FAERS Safety Report 18055039 (Version 2)
Quarter: 2020Q3

REPORT INFORMATION
  Report Type: Spontaneous
  Country: US (occurrence: US)
  Receive Date: 20200722
  Receipt Date: 20200821
  Transmission Date: 20201103
  Serious: Yes (Other)
  Sender: FDA-Public Use
  Company Number: US-SA-2020SA189331

PATIENT

DRUGS (21)
  1. CABERGOLINE. [Concomitant]
     Active Substance: CABERGOLINE
  2. BUPRENORPHINE. [Concomitant]
     Active Substance: BUPRENORPHINE
  3. SIMBRINZA [Concomitant]
     Active Substance: BRIMONIDINE TARTRATE\BRINZOLAMIDE
  4. ARNUITY ELLIPTA [Concomitant]
     Active Substance: FLUTICASONE FUROATE
     Indication: ASTHMA
     Dosage: 200 G
  5. PRIMIDONE. [Concomitant]
     Active Substance: PRIMIDONE
  6. SUMATRIPTAN. [Concomitant]
     Active Substance: SUMATRIPTAN
  7. ERGOCALCIFEROL. [Concomitant]
     Active Substance: ERGOCALCIFEROL
  8. TRICOR [Concomitant]
     Active Substance: FENOFIBRATE
  9. COMBIGAN [Concomitant]
     Active Substance: BRIMONIDINE TARTRATE\TIMOLOL MALEATE
  10. DEXILANT [Concomitant]
     Active Substance: DEXLANSOPRAZOLE
  11. ESTRADIOL. [Concomitant]
     Active Substance: ESTRADIOL
  12. DULOXETINE. [Concomitant]
     Active Substance: DULOXETINE
  13. NABUMETONE. [Concomitant]
     Active Substance: NABUMETONE
  14. SYNTHROID [Concomitant]
     Active Substance: LEVOTHYROXINE SODIUM
  15. DUPIXENT [Suspect]
     Active Substance: DUPILUMAB
     Indication: ASTHMA
     Dosage: 200 MG, QOW
     Route: 058
     Dates: start: 20190217
  16. FLECAINIDE [Concomitant]
     Active Substance: FLECAINIDE
  17. FLUCONAZOLE. [Concomitant]
     Active Substance: FLUCONAZOLE
  18. AMITRIPTYLINE;CHLORDIAZEPOXIDE [Concomitant]
  19. LIPTOR [ATORVASTATIN] [Concomitant]
  20. BUSPIRONE [Concomitant]
     Active Substance: BUSPIRONE HYDROCHLORIDE
  21. METHOCARBAMOL. [Concomitant]
     Active Substance: METHOCARBAMOL

REACTIONS (5)
  - Staphylococcal infection [Unknown]
  - Chronic gastritis [Unknown]
  - Osteomyelitis bacterial [Unknown]
  - Bacterial infection [Unknown]
  - Sinusitis [Not Recovered/Not Resolved]

NARRATIVE: CASE EVENT DATE: 20200708
